FAERS Safety Report 10089030 (Version 2)
Quarter: 2014Q2

REPORT INFORMATION
  Report Type: Spontaneous
  Country: US (occurrence: US)
  Receive Date: 20140421
  Receipt Date: 20140421
  Transmission Date: 20141212
  Serious: Yes (Other)
  Sender: FDA-Public Use
  Company Number: US-ROCHE-1360516

PATIENT
  Sex: Male

DRUGS (10)
  1. ERIVEDGE [Suspect]
     Indication: BASAL CELL CARCINOMA
     Route: 048
     Dates: start: 20140129, end: 20140408
  2. SIMVASTATIN [Concomitant]
  3. PROZAC [Concomitant]
  4. ASPIRIN [Concomitant]
  5. DIGOXIN [Concomitant]
  6. SPIRONOLACTONE [Concomitant]
  7. TRAZODONE [Concomitant]
  8. LORAZEPAM [Concomitant]
  9. LASIX [Concomitant]
  10. ALLOPURINOL [Concomitant]

REACTIONS (2)
  - Lung neoplasm malignant [Unknown]
  - Muscle spasms [Unknown]
